FAERS Safety Report 9244764 (Version 1)
Quarter: 2013Q2

REPORT INFORMATION
  Report Type: Spontaneous
  Country: US (occurrence: US)
  Receive Date: 20130422
  Receipt Date: 20130422
  Transmission Date: 20140414
  Serious: Yes (Other)
  Sender: FDA-Public Use
  Company Number: US-SUN PHARMACEUTICAL INDUSTRIES LTD-2013SUN00477

PATIENT
  Sex: 0

DRUGS (2)
  1. TAMSULOSIN HCL CAPS 0.4MG [Suspect]
     Indication: BENIGN PROSTATIC HYPERPLASIA
     Dosage: 0.8 MG, OD, EVERY EVENING
     Route: 065
     Dates: start: 20130128
  2. PROSCAR 5 MG [Concomitant]

REACTIONS (1)
  - Supraventricular tachycardia [Unknown]
